FAERS Safety Report 6100590-7 (Version None)
Quarter: 2009Q1

REPORT INFORMATION
  Report Type: 
  Country: None (occurrence: None)
  Receive Date: 20090227
  Receipt Date: 20090227
  Transmission Date: 20090719
  Serious: Yes (Other)
  Sender: FDA-Public Use
  Company Number: None

PATIENT
  Sex: Female
  Weight: 157.8518 kg

DRUGS (1)
  1. SUBOXONE [Suspect]
     Indication: DRUG DEPENDENCE
     Dosage: 4/1MG ON DAY 1 THEN 8/2MG DAILY SL
     Route: 060
     Dates: start: 20090206, end: 20090208

REACTIONS (4)
  - FATIGUE [None]
  - HEART RATE INCREASED [None]
  - MEMORY IMPAIRMENT [None]
  - UNRESPONSIVE TO STIMULI [None]
